FAERS Safety Report 7224642-3 (Version None)
Quarter: 2011Q1

REPORT INFORMATION
  Report Type: 
  Country: None (occurrence: None)
  Receive Date: 20110113
  Receipt Date: 20110106
  Transmission Date: 20110831
  Serious: Yes (Death)
  Sender: FDA-Public Use
  Company Number: US-JNJFOC-20110101719

PATIENT
  Age: 58 Year
  Sex: Female

DRUGS (4)
  1. ACETAMINOPHEN [Suspect]
  2. ACETAMINOPHEN [Suspect]
     Indication: SUICIDE ATTEMPT
  3. SALICYLATES NOS [Suspect]
     Indication: SUICIDE ATTEMPT
  4. QUETIAPINE [Suspect]
     Indication: SUICIDE ATTEMPT

REACTIONS (1)
  - TOXICITY TO VARIOUS AGENTS [None]
